FAERS Safety Report 7085369-4 (Version None)
Quarter: 2010Q4

REPORT INFORMATION
  Report Type: 
  Country: None (occurrence: None)
  Receive Date: 20101105
  Receipt Date: 20101025
  Transmission Date: 20110411
  Serious: Yes (Hospitalization)
  Sender: FDA-Public Use
  Company Number: PHHY2010JP65983

PATIENT
  Sex: Male
  Weight: 49 kg

DRUGS (6)
  1. AFINITOR [Suspect]
     Indication: METASTATIC RENAL CELL CARCINOMA
     Dosage: UNK
     Route: 048
     Dates: start: 20100816
  2. CODEINE PHOSPHATE [Concomitant]
     Indication: RENAL CELL CARCINOMA
     Dosage: 6 G, UNK
     Route: 048
     Dates: start: 20100824
  3. MALFA [Concomitant]
     Dosage: 30 ML, UNK
     Route: 048
     Dates: start: 20100824
  4. KENALOG [Concomitant]
     Dosage: UNK
     Dates: start: 20100825
  5. TAKEPRON [Concomitant]
     Indication: RENAL CELL CARCINOMA
     Dosage: 30 MG, UNK
     Route: 048
     Dates: start: 20100816
  6. LOXONIN [Concomitant]
     Indication: RENAL CELL CARCINOMA
     Dosage: 180 MG, UNK
     Route: 048

REACTIONS (4)
  - ANAEMIA [None]
  - HAEMATURIA [None]
  - HAEMORRHAGIC DIATHESIS [None]
  - MELAENA [None]
